FAERS Safety Report 5767574-X (Version None)
Quarter: 2008Q2

REPORT INFORMATION
  Report Type: 
  Country: None (occurrence: None)
  Receive Date: 20080612
  Receipt Date: 20080606
  Transmission Date: 20081010
  Serious: Yes (Hospitalization, Other)
  Sender: FDA-Public Use
  Company Number: HQWYE295321JUL04

PATIENT
  Sex: Female
  Weight: 79.45 kg

DRUGS (6)
  1. PREMARIN [Suspect]
     Indication: HORMONE REPLACEMENT THERAPY
     Dosage: UNKNOWN
     Dates: start: 19880101, end: 19990421
  2. ETHINYLESTRADIOL/NORGESTREL [Suspect]
  3. PROVERA [Suspect]
  4. NORETHINDRONE ACETATE [Suspect]
  5. PROGESTERONE [Suspect]
     Indication: HORMONE REPLACEMENT THERAPY
     Dosage: UNKNOWN
     Dates: start: 19880101, end: 19990421
  6. PREMPRO [Suspect]

REACTIONS (2)
  - BREAST CANCER METASTATIC [None]
  - LUNG CANCER METASTATIC [None]
